FAERS Safety Report 5493333-1 (Version None)
Quarter: 2007Q4

REPORT INFORMATION
  Report Type: 
  Country: None (occurrence: None)
  Receive Date: 20071023
  Receipt Date: 20070807
  Transmission Date: 20080405
  Serious: No
  Sender: FDA-Public Use
  Company Number: US-BRISTOL-MYERS SQUIBB COMPANY-13871959

PATIENT

DRUGS (1)
  1. KENALOG-40 [Suspect]
     Indication: RETINITIS
     Route: 031

REACTIONS (3)
  - EYE PAIN [None]
  - OFF LABEL USE [None]
  - VISUAL DISTURBANCE [None]
